FAERS Safety Report 11680509 (Version 2)
Quarter: 2015Q4

REPORT INFORMATION
  Report Type: Spontaneous
  Country: US (occurrence: US)
  Receive Date: 20151027
  Receipt Date: 20151104
  Transmission Date: 20160304
  Serious: No
  Sender: FDA-Public Use
  Company Number: US-ELI_LILLY_AND_COMPANY-US201009005771

PATIENT
  Age: 53 Year
  Sex: Female

DRUGS (8)
  1. VITAMIN D [Concomitant]
     Active Substance: CHOLECALCIFEROL
     Indication: VITAMIN D DECREASED
     Dosage: 50000 IU, WEEKLY (1/W)
  2. FORTEO [Suspect]
     Active Substance: TERIPARATIDE
     Dosage: 20 UG, DAILY (1/D)
  3. FORTEO [Suspect]
     Active Substance: TERIPARATIDE
     Dosage: 20 UG, QD
  4. BUSPAR [Concomitant]
     Active Substance: BUSPIRONE HYDROCHLORIDE
     Indication: ANXIETY
  5. FORTEO [Suspect]
     Active Substance: TERIPARATIDE
     Dosage: 20 UG, QD
  6. FORTEO [Suspect]
     Active Substance: TERIPARATIDE
     Dosage: 20 UG, QD
  7. FORTEO [Suspect]
     Active Substance: TERIPARATIDE
     Indication: OSTEOPOROSIS
     Dosage: 20 UG, QD
     Dates: start: 20100919
  8. FORTEO [Suspect]
     Active Substance: TERIPARATIDE
     Dosage: 20 UG, QD

REACTIONS (26)
  - Anxiety [Unknown]
  - Vitamin D decreased [Recovering/Resolving]
  - Vascular injury [Unknown]
  - Pain [Unknown]
  - Injection site pain [Not Recovered/Not Resolved]
  - Arthralgia [Not Recovered/Not Resolved]
  - Blood calcium decreased [Recovering/Resolving]
  - Bedridden [Unknown]
  - Dry skin [Unknown]
  - Injection site discomfort [Unknown]
  - Walking aid user [Unknown]
  - Bone disorder [Unknown]
  - Panic disorder [Recovered/Resolved]
  - Injection site bruising [Unknown]
  - Injection site extravasation [Not Recovered/Not Resolved]
  - Nervousness [Unknown]
  - Bone pain [Not Recovered/Not Resolved]
  - Anxiety [Recovered/Resolved]
  - Arthralgia [Unknown]
  - Drug dose omission [Recovered/Resolved]
  - Sciatica [Not Recovered/Not Resolved]
  - Mood altered [Unknown]
  - Injection site erythema [Not Recovered/Not Resolved]
  - Injection site rash [Unknown]
  - Back pain [Unknown]
  - Vitamin D increased [Unknown]

NARRATIVE: CASE EVENT DATE: 20101218
